FAERS Safety Report 8129036-4 (Version None)
Quarter: 2012Q1

REPORT INFORMATION
  Report Type: 
  Country: None (occurrence: None)
  Receive Date: 20120210
  Receipt Date: 20110811
  Transmission Date: 20120608
  Serious: No
  Sender: FDA-Public Use
  Company Number: US-BRISTOL-MYERS SQUIBB COMPANY-15966104

PATIENT
  Age: 74 Year
  Sex: Female
  Weight: 45 kg

DRUGS (6)
  1. RANITIDINE [Concomitant]
  2. TRAZODONE HCL [Concomitant]
  3. ARAVA [Concomitant]
  4. PREDNISONE [Concomitant]
  5. ORENCIA [Suspect]
     Dosage: NUMBER OF INFUSIONS 5 5TH INFUSION IS SCHEDULED ON 17AUG2011
     Dates: start: 20110616
  6. METOCLOPRAMIDE [Concomitant]

REACTIONS (1)
  - BLOOD CHOLESTEROL INCREASED [None]
